FAERS Safety Report 21821188 (Version 3)
Quarter: 2023Q1

REPORT INFORMATION
  Report Type: Spontaneous
  Country: US (occurrence: US)
  Receive Date: 20230105
  Receipt Date: 20230215
  Transmission Date: 20230417
  Serious: No
  Sender: FDA-Public Use
  Company Number: US-JNJFOC-20221252821

PATIENT
  Age: 66 Year
  Sex: Female

DRUGS (1)
  1. TREMFYA [Suspect]
     Active Substance: GUSELKUMAB
     Indication: Psoriasis
     Route: 058
     Dates: start: 20220414

REACTIONS (4)
  - Product dose omission issue [Unknown]
  - Therapeutic product effect incomplete [Unknown]
  - Psoriasis [Unknown]
  - Frustration tolerance decreased [Unknown]
